FAERS Safety Report 21743209 (Version 1)
Quarter: 2022Q4

REPORT INFORMATION
  Report Type: Report from Study
  Country: US (occurrence: US)
  Receive Date: 20221217
  Receipt Date: 20221217
  Transmission Date: 20230113
  Serious: No
  Sender: FDA-Public Use
  Company Number: US-002147023-NVSC2022US288414

PATIENT
  Sex: Female

DRUGS (1)
  1. COSENTYX [Suspect]
     Active Substance: SECUKINUMAB
     Indication: Psoriasis
     Dosage: 300 MG, QW FOR 5 WEEKS AND THEN Q 4 WEEKS
     Route: 058
     Dates: start: 202209

REACTIONS (3)
  - Psoriasis [Recovering/Resolving]
  - Pruritus [Unknown]
  - Acne [Unknown]
